FAERS Safety Report 23292569 (Version 2)
Quarter: 2024Q1

REPORT INFORMATION
  Report Type: Report from Study
  Country: CA (occurrence: CA)
  Receive Date: 20231213
  Receipt Date: 20240129
  Transmission Date: 20240410
  Serious: Yes (Other)
  Sender: FDA-Public Use
  Company Number: CA-PFIZER INC-202300435693

PATIENT
  Age: 65 Year
  Sex: Female

DRUGS (12)
  1. RITUXIMAB [Suspect]
     Active Substance: RITUXIMAB
     Indication: Rheumatoid arthritis
     Dosage: UNK
     Route: 041
  2. RITUXIMAB [Suspect]
     Active Substance: RITUXIMAB
     Dosage: UNK
     Route: 042
  3. ALVESCO [Concomitant]
     Active Substance: CICLESONIDE
  4. ATIVAN [Concomitant]
     Active Substance: LORAZEPAM
  5. ATROVENT [Concomitant]
     Active Substance: IPRATROPIUM BROMIDE
  6. BENADRYL [Concomitant]
     Active Substance: DIPHENHYDRAMINE HYDROCHLORIDE
  7. CORTEF [Concomitant]
     Active Substance: HYDROCORTISONE
  8. COUMADIN [Concomitant]
     Active Substance: WARFARIN SODIUM
  9. DAPSONE [Concomitant]
     Active Substance: DAPSONE
  10. LIPITOR [Concomitant]
     Active Substance: ATORVASTATIN CALCIUM
  11. MORPHINE [Concomitant]
     Active Substance: MORPHINE
  12. RABEPRAZOLE SODIUM [Concomitant]
     Active Substance: RABEPRAZOLE SODIUM

REACTIONS (10)
  - Arterial disorder [Unknown]
  - Blister [Unknown]
  - Fatigue [Unknown]
  - Gastrointestinal disorder [Unknown]
  - Hypertension [Unknown]
  - Insomnia [Unknown]
  - Micturition disorder [Unknown]
  - Pain [Unknown]
  - Urticaria [Unknown]
  - Vascular rupture [Unknown]
